FAERS Safety Report 25832806 (Version 1)
Quarter: 2025Q3

REPORT INFORMATION
  Report Type: Spontaneous
  Country: US (occurrence: None)
  Receive Date: 20250922
  Receipt Date: 20250922
  Transmission Date: 20251020
  Serious: Yes (Hospitalization)
  Sender: FDA-CTU
  Company Number: None

PATIENT
  Sex: Female

DRUGS (11)
  1. REVLIMID [Suspect]
     Active Substance: LENALIDOMIDE
     Indication: Neoplasm malignant
     Route: 048
     Dates: start: 20250829
  2. ATORVASTATIN [Concomitant]
     Active Substance: ATORVASTATIN
  3. CELEBREX [Concomitant]
     Active Substance: CELECOXIB
  4. CEPHALEXIN [Concomitant]
     Active Substance: CEPHALEXIN
  5. CYANOCOBAL [Concomitant]
  6. ESTRACE VAG [Concomitant]
  7. JARDIANCE [Concomitant]
     Active Substance: EMPAGLIFLOZIN
  8. LANTUS [Concomitant]
     Active Substance: INSULIN GLARGINE
  9. LENALIDOMIDE [Suspect]
     Active Substance: LENALIDOMIDE
  10. LEVOTHYROXINE [Concomitant]
     Active Substance: LEVOTHYROXINE
  11. LISINOPRIL [Concomitant]
     Active Substance: LISINOPRIL

REACTIONS (1)
  - Thrombosis [None]
